FAERS Safety Report 21948693 (Version 2)
Quarter: 2023Q1

REPORT INFORMATION
  Report Type: Other
  Country: CH (occurrence: CH)
  Receive Date: 20230203
  Receipt Date: 20230208
  Transmission Date: 20230418
  Serious: Yes (Other)
  Sender: FDA-Public Use
  Company Number: None

PATIENT
  Age: 77 Year
  Sex: Female

DRUGS (23)
  1. MIRABEGRON [Suspect]
     Active Substance: MIRABEGRON
     Indication: Product used for unknown indication
     Route: 065
     Dates: start: 20230103
  2. PREGABALIN [Suspect]
     Active Substance: PREGABALIN
     Indication: Product used for unknown indication
     Route: 065
     Dates: start: 20221228, end: 20230104
  3. PREGABALIN [Suspect]
     Active Substance: PREGABALIN
     Route: 065
     Dates: start: 20230105, end: 20230117
  4. ESOMEPRAZOLE [Concomitant]
     Active Substance: ESOMEPRAZOLE
     Indication: Product used for unknown indication
     Dosage: 20 MG, ONCE DAILY (REGULAR TREATMENT)
     Route: 065
  5. ASPIRIN [Concomitant]
     Active Substance: ASPIRIN
     Indication: Product used for unknown indication
     Dosage: UNK UNK, UNKNOWN FREQ. (REGULAR TREATMENT)
     Route: 065
     Dates: start: 2021
  6. CYMBALTA [Concomitant]
     Active Substance: DULOXETINE HYDROCHLORIDE
     Indication: Product used for unknown indication
     Dosage: 60 MG, ONCE DAILY (REGULAR TREATMENT)
     Route: 065
     Dates: start: 2021, end: 20230103
  7. CYMBALTA [Concomitant]
     Active Substance: DULOXETINE HYDROCHLORIDE
     Dosage: 90 MG, ONCE DAILY (REGULAR TREATMENT)
     Route: 065
     Dates: start: 20230104
  8. OXAZEPAM [Concomitant]
     Active Substance: OXAZEPAM
     Indication: Product used for unknown indication
     Dosage: UNK UNK, UNKNOWN FREQ. (REGULAR TREATMENT)
     Route: 065
  9. IMOVANE [Concomitant]
     Active Substance: ZOPICLONE
     Indication: Product used for unknown indication
     Dosage: UNK UNK, AS NEEDED (REGULAR TREATMENT)
     Route: 065
  10. EUTHYROX [Concomitant]
     Active Substance: LEVOTHYROXINE SODIUM
     Indication: Product used for unknown indication
     Dosage: UNK UNK, UNKNOWN FREQ. (REGULAR TREATMENT)
     Route: 065
     Dates: start: 2021
  11. SITAGLIPTIN [Concomitant]
     Active Substance: SITAGLIPTIN
     Indication: Product used for unknown indication
     Dosage: UNK UNK, UNKNOWN FREQ.
     Route: 065
     Dates: start: 20221229
  12. INSULIN ASPART [Concomitant]
     Active Substance: INSULIN ASPART
     Indication: Product used for unknown indication
     Dosage: UNK UNK, AS NEEDED
     Route: 065
     Dates: start: 20221230
  13. DAFALGAN [Concomitant]
     Active Substance: ACETAMINOPHEN
     Indication: Product used for unknown indication
     Dosage: UNK UNK, AS NEEDED (REGULAR TREATMENT)
     Route: 065
     Dates: start: 2021
  14. TRAMADOL [Concomitant]
     Active Substance: TRAMADOL
     Indication: Product used for unknown indication
     Dosage: 1 DF, IN TOTAL (AS NEEDED SINGLE PRESCRIPTION)
     Route: 065
     Dates: start: 20221231, end: 20221231
  15. TRAMADOL [Concomitant]
     Active Substance: TRAMADOL
     Dosage: 1 DF, IN TOTAL (AS NEEDED SINGLE PRESCRIPTION)
     Route: 065
     Dates: start: 20230115, end: 20230115
  16. SODIUM PICOSULFATE [Concomitant]
     Active Substance: SODIUM PICOSULFATE
     Indication: Product used for unknown indication
     Dosage: UNK UNK, UNKNOWN FREQ.
     Route: 065
     Dates: start: 20221230
  17. FIG FRUIT OIL\SORBITOL [Concomitant]
     Active Substance: FIG FRUIT OIL\SORBITOL
     Indication: Product used for unknown indication
     Dosage: UNK UNK, UNKNOWN FREQ.
     Route: 065
     Dates: start: 20221230
  18. VITAMIN C [Concomitant]
     Active Substance: ASCORBIC ACID
     Indication: Product used for unknown indication
     Dosage: UNK UNK, UNKNOWN FREQ.
     Route: 065
     Dates: start: 20221222
  19. VITAMIN D [Concomitant]
     Active Substance: VITAMIN D NOS
     Indication: Product used for unknown indication
     Dosage: UNK UNK, UNKNOWN FREQ.
     Route: 065
     Dates: start: 20221227
  20. GLUCOPHAGE [Concomitant]
     Active Substance: METFORMIN HYDROCHLORIDE
     Indication: Product used for unknown indication
     Dosage: UNK UNK, UNKNOWN FREQ. (REGULAR TREATMENT)
     Route: 065
     Dates: end: 20221228
  21. VITAMINS [Concomitant]
     Active Substance: VITAMINS
     Indication: Product used for unknown indication
     Dosage: UNK UNK, UNKNOWN FREQ.
     Route: 065
     Dates: start: 20221222
  22. FURADANTIN [Concomitant]
     Active Substance: NITROFURANTOIN
     Indication: Product used for unknown indication
     Dosage: UNK UNK, UNKNOWN FREQ.
     Route: 065
     Dates: start: 20221222, end: 20221226
  23. Gynoflor [Concomitant]
     Indication: Product used for unknown indication
     Dosage: 1 DF (VAGINAL TABLET), UNKNOWN FREQ.
     Route: 067
     Dates: start: 20221225, end: 20221228

REACTIONS (1)
  - Oedema peripheral [Not Recovered/Not Resolved]

NARRATIVE: CASE EVENT DATE: 20230103
